FAERS Safety Report 16654063 (Version 2)
Quarter: 2020Q2

REPORT INFORMATION
  Report Type: Spontaneous
  Country: US (occurrence: US)
  Receive Date: 20190731
  Receipt Date: 20200403
  Transmission Date: 20200713
  Serious: Yes (Other)
  Sender: FDA-Public Use
  Company Number: US-GILEAD-2019-0420454

PATIENT
  Age: 54 Year
  Sex: Male
  Weight: 81.63 kg

DRUGS (43)
  1. TRILEPTAL [Concomitant]
     Active Substance: OXCARBAZEPINE
  2. PROZAC [Concomitant]
     Active Substance: FLUOXETINE HYDROCHLORIDE
  3. ATENOLOL. [Concomitant]
     Active Substance: ATENOLOL
  4. ALPRAZOLAM. [Concomitant]
     Active Substance: ALPRAZOLAM
  5. LORATADINE 1A PHARMA [Concomitant]
  6. GUAIFENESIN. [Concomitant]
     Active Substance: GUAIFENESIN
  7. GENVOYA [Concomitant]
     Active Substance: COBICISTAT\ELVITEGRAVIR\EMTRICITABINE\TENOFOVIR ALAFENAMIDE FUMARATE
  8. METOPROLOL. [Concomitant]
     Active Substance: METOPROLOL
  9. LIDOCAINE. [Concomitant]
     Active Substance: LIDOCAINE
  10. NORVASC [Concomitant]
     Active Substance: AMLODIPINE BESYLATE
  11. PEPCID [Concomitant]
     Active Substance: FAMOTIDINE
  12. OMEPRAZOLE. [Concomitant]
     Active Substance: OMEPRAZOLE
  13. PERMETHRIN BIOMO [Concomitant]
  14. XANAX [Concomitant]
     Active Substance: ALPRAZOLAM
  15. LOSARTAN POTASSIUM. [Concomitant]
     Active Substance: LOSARTAN POTASSIUM
  16. ADEFOVIR [Concomitant]
     Active Substance: ADEFOVIR
  17. HEPSERA [Concomitant]
     Active Substance: ADEFOVIR DIPIVOXIL
  18. HYDROCHLOROTHIAZID [Concomitant]
     Active Substance: HYDROCHLOROTHIAZIDE
  19. ACETAMINOPHEN. [Concomitant]
     Active Substance: ACETAMINOPHEN
  20. TORADOL [Concomitant]
     Active Substance: KETOROLAC TROMETHAMINE
  21. PNEUMO 23 [Concomitant]
     Active Substance: PNEUMOCOCCAL VACCINE, POLYVALENT 23
  22. ATRIPLA [Suspect]
     Active Substance: EFAVIRENZ\EMTRICITABINE\TENOFOVIR DISOPROXIL FUMARATE
     Indication: HIV INFECTION
     Dosage: UNK
     Route: 048
     Dates: start: 20110810, end: 20160627
  23. BIKTARVY [Concomitant]
     Active Substance: BICTEGRAVIR SODIUM\EMTRICITABINE\TENOFOVIR ALAFENAMIDE FUMARATE
  24. NAPROXEN. [Concomitant]
     Active Substance: NAPROXEN
  25. VOLTARENE (DICLOFENAC SODIUM) [Concomitant]
     Active Substance: DICLOFENAC SODIUM
  26. MEDROL [METHYLPREDNISOLONE ACETATE] [Concomitant]
     Active Substance: METHYLPREDNISOLONE ACETATE
  27. FLONASE [Concomitant]
     Active Substance: FLUTICASONE PROPIONATE
  28. LISINOPRIL. [Concomitant]
     Active Substance: LISINOPRIL
  29. VITAMIN D [VITAMIN D NOS] [Concomitant]
     Active Substance: VITAMIN D NOS
  30. DIVALPROEX [Concomitant]
     Active Substance: DIVALPROEX SODIUM
  31. ASPIRIN 81 [Concomitant]
     Active Substance: ASPIRIN
  32. ULTRAM [PARACETAMOL;TRAMADOL HYDROCHLORIDE] [Concomitant]
     Active Substance: ACETAMINOPHEN\TRAMADOL HYDROCHLORIDE
  33. OXCARBAZEPINE. [Concomitant]
     Active Substance: OXCARBAZEPINE
  34. CYMBALTA [Concomitant]
     Active Substance: DULOXETINE HYDROCHLORIDE
  35. AMLODIPINE BESILATE [Concomitant]
     Active Substance: AMLODIPINE BESYLATE
  36. ADVAIR HFA [Concomitant]
     Active Substance: FLUTICASONE PROPIONATE\SALMETEROL XINAFOATE
  37. MONTELUKAST [Concomitant]
     Active Substance: MONTELUKAST SODIUM
  38. KETOROLAC [Concomitant]
     Active Substance: KETOROLAC TROMETHAMINE
  39. DEPAKOTE ER [Concomitant]
     Active Substance: DIVALPROEX SODIUM
  40. TRAZODONE [Concomitant]
     Active Substance: TRAZODONE HYDROCHLORIDE
  41. LISINOPRIL AND HYDROCHLOROTHIAZIDE [Concomitant]
     Active Substance: HYDROCHLOROTHIAZIDE\LISINOPRIL
  42. TDAP [Concomitant]
     Active Substance: TETANUS TOXOID, REDUCED DIPHTHERIA TOXOID AND ACELLULAR PERTUSSIS VACCINE ADSORBED, TDAP
  43. METHOCARBAMOL. [Concomitant]
     Active Substance: METHOCARBAMOL

REACTIONS (6)
  - Pain [Unknown]
  - Emotional distress [Unknown]
  - Anxiety [Unknown]
  - Economic problem [Unknown]
  - Anhedonia [Unknown]
  - Fracture [Recovered/Resolved]

NARRATIVE: CASE EVENT DATE: 20190425
